FAERS Safety Report 21227365 (Version 1)
Quarter: 2022Q3

REPORT INFORMATION
  Report Type: Spontaneous
  Country: US (occurrence: None)
  Receive Date: 20220817
  Receipt Date: 20220817
  Transmission Date: 20221026
  Serious: Yes (unspecified)
  Sender: FDA-Public Use
  Company Number: None

PATIENT
  Age: 83 Year
  Sex: Male
  Weight: 82.9 kg

DRUGS (2)
  1. DEVICE [Suspect]
     Active Substance: DEVICE
     Indication: Product used for unknown indication
  2. HEPARIN [Suspect]
     Active Substance: HEPARIN SODIUM
     Indication: Product used for unknown indication

REACTIONS (2)
  - Incorrect drug administration rate [None]
  - Device infusion issue [None]

NARRATIVE: CASE EVENT DATE: 20220814
